FAERS Safety Report 5126853-X (Version None)
Quarter: 2006Q4

REPORT INFORMATION
  Report Type: 
  Country: None (occurrence: None)
  Receive Date: 20061013
  Receipt Date: 20060824
  Transmission Date: 20070319
  Serious: No
  Sender: FDA-Public Use
  Company Number: GB-BAYER-200611044BNE

PATIENT
  Age: 48 Year
  Sex: Female
  Weight: 60 kg

DRUGS (16)
  1. NIMOTOP [Suspect]
     Indication: SUBARACHNOID HAEMORRHAGE
     Route: 042
     Dates: start: 20060819
  2. NIMOTOP [Suspect]
     Dosage: AS USED: 60 MG
     Route: 048
     Dates: start: 20060830
  3. PANTOPRAZOLE SODIUM [Concomitant]
     Indication: PROPHYLAXIS AGAINST GASTROINTESTINAL ULCER
     Route: 042
     Dates: start: 20060818, end: 20060830
  4. METOCLOPRAMIDE [Concomitant]
     Indication: GASTRIC HYPOMOTILITY
     Dosage: TOTAL DAILY DOSE: 30 MG
     Route: 040
     Dates: start: 20060819, end: 20060821
  5. CEFTRIAXONE [Concomitant]
     Indication: LOWER RESPIRATORY TRACT INFECTION
     Dosage: TOTAL DAILY DOSE: 2 G
     Route: 042
     Dates: start: 20060819, end: 20060823
  6. LACTULOSE [Concomitant]
     Indication: CONSTIPATION PROPHYLAXIS
     Dosage: TOTAL DAILY DOSE: 20 ML
     Route: 045
     Dates: start: 20060822, end: 20060830
  7. SENNA [Concomitant]
     Indication: CONSTIPATION PROPHYLAXIS
     Dates: start: 20060823, end: 20060830
  8. ACETAMINOPHEN [Concomitant]
     Dosage: TOTAL DAILY DOSE: 4 G
     Route: 042
  9. PROPOFOL [Concomitant]
     Route: 042
  10. ALFENTANIL [Concomitant]
  11. ACTRAPID [Concomitant]
  12. NORADRENALINE [Concomitant]
  13. POTASSIUM CHLORIDE [Concomitant]
  14. MAGNESIUM SULFATE [Concomitant]
  15. CALCIUM GLUCONATE [Concomitant]
  16. POTASSIUM PHOSPHATES [Concomitant]

REACTIONS (3)
  - ALANINE AMINOTRANSFERASE INCREASED [None]
  - ASPARTATE AMINOTRANSFERASE INCREASED [None]
  - GAMMA-GLUTAMYLTRANSFERASE INCREASED [None]
